FAERS Safety Report 7176563-2 (Version None)
Quarter: 2010Q4

REPORT INFORMATION
  Report Type: 
  Country: None (occurrence: None)
  Receive Date: 20101220
  Receipt Date: 20101206
  Transmission Date: 20110411
  Serious: Yes (Hospitalization, Other)
  Sender: FDA-Public Use
  Company Number: PHHY2010CH82524

PATIENT
  Age: 66 Year
  Sex: Female

DRUGS (4)
  1. SANDIMMUNE [Suspect]
     Indication: RENAL TRANSPLANT
     Dosage: 100 MG, UNK
     Dates: start: 19920101
  2. INVANZ [Suspect]
     Indication: CHOLECYSTITIS
     Dosage: 1000 MG, UNK
     Route: 042
  3. PHENYTOIN [Concomitant]
     Dosage: UNK
     Dates: start: 19890101, end: 19910101
  4. CARBAMAZEPINE [Concomitant]

REACTIONS (7)
  - ABDOMINAL PAIN UPPER [None]
  - CHOLECYSTITIS [None]
  - CHOLELITHIASIS [None]
  - GRAND MAL CONVULSION [None]
  - INFLAMMATION [None]
  - MASS [None]
  - THERAPEUTIC RESPONSE DECREASED [None]
